FAERS Safety Report 15561680 (Version 4)
Quarter: 2019Q1

REPORT INFORMATION
  Report Type: Spontaneous
  Country: US (occurrence: US)
  Receive Date: 20181029
  Receipt Date: 20190325
  Transmission Date: 20190417
  Serious: Yes (Hospitalization, Other)
  Sender: FDA-Public Use
  Company Number: US-GLAXOSMITHKLINE-US2018GSK195373

PATIENT
  Sex: Female

DRUGS (3)
  1. LAMOTRIGINE (HEXAL AG) TABLET [Suspect]
     Active Substance: LAMOTRIGINE
     Indication: PRODUCT USED FOR UNKNOWN INDICATION
     Dosage: UNK
     Route: 065
  2. LAMICTAL [Suspect]
     Active Substance: LAMOTRIGINE
     Indication: DEPRESSION
     Dosage: 50 MG, UNK
     Route: 048
     Dates: start: 20180709
  3. LAMICTAL [Suspect]
     Active Substance: LAMOTRIGINE
     Indication: BIPOLAR DISORDER
     Dosage: 25 MG, QD
     Route: 048

REACTIONS (39)
  - Oral discomfort [Unknown]
  - Genital rash [Unknown]
  - Vulvovaginal pain [Unknown]
  - Rash maculo-papular [Unknown]
  - Lip blister [Unknown]
  - Oral mucosal exfoliation [Unknown]
  - Oral pain [Unknown]
  - Dry skin [Unknown]
  - Productive cough [Unknown]
  - Vaginal erosion [Unknown]
  - Rash erythematous [Unknown]
  - Macule [Unknown]
  - Vulvar erosion [Unknown]
  - Hypersensitivity [Unknown]
  - Skin burning sensation [Unknown]
  - Scab [Unknown]
  - Foreign body sensation in eyes [Unknown]
  - Oral disorder [Unknown]
  - Dry eye [Unknown]
  - Papule [Unknown]
  - Skin exfoliation [Unknown]
  - Erythema [Unknown]
  - Lip erythema [Unknown]
  - Nail disorder [Unknown]
  - Stevens-Johnson syndrome [Unknown]
  - Rash [Unknown]
  - Skin lesion [Unknown]
  - Lip swelling [Unknown]
  - Pain of skin [Unknown]
  - Skin hyperpigmentation [Unknown]
  - Lip pain [Unknown]
  - Rash pruritic [Unknown]
  - Skin erosion [Unknown]
  - Lip erosion [Unknown]
  - Tenderness [Unknown]
  - Eye irritation [Unknown]
  - Mouth haemorrhage [Unknown]
  - Stomatitis [Unknown]
  - Cheilitis [Unknown]
